FAERS Safety Report 22957242 (Version 2)
Quarter: 2024Q1

REPORT INFORMATION
  Report Type: Other
  Country: GB (occurrence: None)
  Receive Date: 20230919
  Receipt Date: 20240228
  Transmission Date: 20240409
  Serious: Yes (Hospitalization, Other)
  Sender: FDA-Public Use
  Company Number: GB-ROCHE-3422962

PATIENT
  Sex: Female

DRUGS (5)
  1. TOCILIZUMAB [Suspect]
     Active Substance: TOCILIZUMAB
     Indication: Rheumatoid arthritis
     Route: 058
  2. TOCILIZUMAB [Suspect]
     Active Substance: TOCILIZUMAB
     Route: 058
     Dates: start: 202310
  3. OMEPRAZOLE [Concomitant]
     Active Substance: OMEPRAZOLE
  4. METHOTREXATE [Concomitant]
     Active Substance: METHOTREXATE
  5. BUTYLSCOPOLAMINE BROMIDE [Concomitant]
     Active Substance: BUTYLSCOPOLAMINE BROMIDE

REACTIONS (6)
  - Diverticulitis [Unknown]
  - Arthritis [Unknown]
  - Stress [Unknown]
  - Hip fracture [Unknown]
  - Diarrhoea [Unknown]
  - Blister [Unknown]
